FAERS Safety Report 6382905-8 (Version None)
Quarter: 2009Q3

REPORT INFORMATION
  Report Type: 
  Country: None (occurrence: None)
  Receive Date: 20090930
  Receipt Date: 20090918
  Transmission Date: 20100115
  Serious: Yes (Other)
  Sender: FDA-Public Use
  Company Number: PHEH2009US09863

PATIENT
  Sex: Female
  Weight: 65.76 kg

DRUGS (25)
  1. RECLAST [Suspect]
     Dosage: 5 MG IV
     Dates: start: 20090821, end: 20090821
  2. SYNTHROID [Concomitant]
     Dosage: 0.15 MG, QD
  3. MORPHINE [Concomitant]
     Dosage: 60 MG, TID
  4. OXYCODONE HCL [Concomitant]
     Dosage: UNK, UNK
  5. LASIX [Concomitant]
     Dosage: 20 MG, QD
  6. VITAMIN D [Concomitant]
     Dosage: 1000 IU, QD
  7. LOVAZA [Concomitant]
     Dosage: 1 GRAM TAB IN AM AND PM
  8. CALCIUM [Concomitant]
     Dosage: UNK, UNK
  9. CITRACAL + D [Concomitant]
  10. MAGNESIUM [Concomitant]
  11. ARIMIDEX [Concomitant]
     Dosage: 1 MG, QD
  12. PROVIGIL [Concomitant]
     Dosage: 200 MG, QD
  13. CENTRUM SILVER [Concomitant]
     Dosage: UNK
  14. ZANTAC [Concomitant]
     Dosage: 1 MG AM AND PM
  15. SPIRONOLACTONE [Concomitant]
     Dosage: 25 MG IN AM AND PM
  16. PERCOCET [Concomitant]
     Dosage: 1 TAB IN THE AM AND PM
  17. ACETAMINOPHEN [Concomitant]
     Dosage: 650 MG TWO TABS IN THE AM AND PM
  18. LYRICA [Concomitant]
     Dosage: 200 MG, TID
  19. SIMVASTATIN [Concomitant]
     Dosage: 20 MG, QHS
  20. AMBIEN CR [Concomitant]
     Dosage: 12.5 MG, QHS
  21. VITAMIN B-12 [Concomitant]
     Dosage: MONTHLY
  22. VOLTAREN                           /00372303/ [Concomitant]
     Dosage: APPLY TO HANDS FOUR TIMES DAILY
  23. ACIDOPHILUS ^ZYMA^ [Concomitant]
     Dosage: 1-4 TIMES A DAY
  24. IBUPROFEN [Concomitant]
     Dosage: 600 MG, BID
  25. ARICEPT [Concomitant]
     Dosage: 5 MG, QHS

REACTIONS (4)
  - AMNESIA [None]
  - BONE PAIN [None]
  - CIRCULATORY COLLAPSE [None]
  - SYNCOPE [None]
